FAERS Safety Report 10262871 (Version 1)
Quarter: 2014Q2

REPORT INFORMATION
  Report Type: Spontaneous
  Country: US (occurrence: US)
  Receive Date: 20140626
  Receipt Date: 20140626
  Transmission Date: 20141212
  Serious: No
  Sender: FDA-Public Use
  Company Number: US-MYLANLABS-2013S1020517

PATIENT
  Age: 30 Year
  Sex: Male

DRUGS (5)
  1. CLOZAPINE TABLETS [Suspect]
     Indication: SCHIZOPHRENIA
     Route: 048
     Dates: start: 20130712, end: 20130831
  2. CLOZAPINE TABLETS [Suspect]
     Indication: SCHIZOPHRENIA
     Route: 048
     Dates: start: 20130831
  3. HALDOL [Concomitant]
     Route: 048
  4. DIPHENHYDRAMINE [Concomitant]
     Route: 048
  5. WARFARIN [Concomitant]
     Route: 048

REACTIONS (3)
  - Neurological symptom [Recovered/Resolved]
  - Myoclonus [Recovered/Resolved]
  - Urinary incontinence [Recovered/Resolved]
